FAERS Safety Report 9917161 (Version 2)
Quarter: 2014Q2

REPORT INFORMATION
  Report Type: Spontaneous
  Country: US (occurrence: US)
  Receive Date: 20140221
  Receipt Date: 20140423
  Transmission Date: 20141212
  Serious: Yes (Other)
  Sender: FDA-Public Use
  Company Number: US-ELI_LILLY_AND_COMPANY-US201402004756

PATIENT
  Sex: Female
  Weight: 166.8 kg

DRUGS (7)
  1. HUMALOG LISPRO [Suspect]
     Indication: TYPE 2 DIABETES MELLITUS
     Dosage: UNK, PRN
     Route: 058
     Dates: start: 2005
  2. HUMALOG LISPRO [Suspect]
     Indication: TYPE 2 DIABETES MELLITUS
     Route: 065
  3. LEVEMIR [Concomitant]
  4. METFORMIN [Concomitant]
     Dosage: 1000 MG, BID
  5. LISINOPRIL [Concomitant]
     Dosage: 30 MG, UNKNOWN
  6. LOVASTATIN [Concomitant]
  7. LEVOTHYROXIN [Concomitant]
     Dosage: 112 MG, UNKNOWN

REACTIONS (3)
  - Trigger finger [Recovered/Resolved]
  - Blood glucose increased [Unknown]
  - Blood glucose decreased [Unknown]
